FAERS Safety Report 7552188 (Version 7)
Quarter: 2017Q4

REPORT INFORMATION
  Report Type: Report from Study
  Country: BR (occurrence: BR)
  Receive Date: 20100824
  Receipt Date: 20171027
  Transmission Date: 20180321
  Serious: Yes (Death, Life-Threatening, Other)
  Sender: FDA-Public Use
  Company Number: BR-SHIRE-SPV1-2010-01451

PATIENT
  Age: 19 Year
  Sex: Male
  Weight: 15 kg

DRUGS (3)
  1. IDURSULFASE [Suspect]
     Active Substance: IDURSULFASE
     Indication: MUCOPOLYSACCHARIDOSIS II
     Dosage: 0.5 MG/KG, 1X/WEEK
     Route: 041
     Dates: start: 20080509
  2. ACETAMINOPHEN. [Concomitant]
     Active Substance: ACETAMINOPHEN
     Indication: PREMEDICATION
     Dosage: 20 GTT, UNKNOWN
     Route: 048
  3. HYDROXYZINE [Concomitant]
     Active Substance: HYDROXYZINE HYDROCHLORIDE
     Indication: PREMEDICATION
     Dosage: 5 ML, UNKNOWN
     Route: 048

REACTIONS (10)
  - Painful respiration [Recovered/Resolved]
  - Rash [Recovered/Resolved]
  - Tachypnoea [Recovered/Resolved]
  - Malnutrition [Fatal]
  - Bradycardia [Recovered/Resolved]
  - Dyspnoea [Recovered/Resolved]
  - Cyanosis [Recovered/Resolved]
  - Oxygen saturation decreased [Recovered/Resolved]
  - Respiratory failure [Fatal]
  - Infusion related reaction [Recovered/Resolved]

NARRATIVE: CASE EVENT DATE: 20100728
